FAERS Safety Report 5166386-8 (Version None)
Quarter: 2006Q4

REPORT INFORMATION
  Report Type: 
  Country: None (occurrence: None)
  Receive Date: 20061129
  Receipt Date: 20061114
  Transmission Date: 20070319
  Serious: Yes (Death)
  Sender: FDA-Public Use
  Company Number: HP200600172

PATIENT
  Age: 75 Year
  Sex: Male
  Weight: 61.1 kg

DRUGS (3)
  1. XENADERM(BALSALM OF PERU, TRYPSIN, CASTOR OIL OINTMENT [Suspect]
     Dosage: BID, TOPICAL
     Route: 061
     Dates: start: 20060819, end: 20061017
  2. PERI-WASH [Concomitant]
  3. SOAP [Concomitant]

REACTIONS (3)
  - CARDIAC FAILURE [None]
  - CAUSTIC INJURY [None]
  - SKIN IRRITATION [None]
